FAERS Safety Report 14009343 (Version 1)
Quarter: 2017Q3

REPORT INFORMATION
  Report Type: Spontaneous
  Country: IN (occurrence: IN)
  Receive Date: 20170925
  Receipt Date: 20170925
  Transmission Date: 20171128
  Serious: Yes (Hospitalization, Other)
  Sender: FDA-Public Use
  Company Number: IN-PFIZER INC-2015263201

PATIENT
  Age: 48 Year
  Sex: Female

DRUGS (8)
  1. COLISTIN [Suspect]
     Active Substance: COLISTIN
     Dosage: 2 MILLION IU, 1X/DAY
  2. COLISTIN [Suspect]
     Active Substance: COLISTIN
     Dosage: 1 MILLION IU, DAILY
  3. PARACETAMOL [Concomitant]
     Active Substance: ACETAMINOPHEN
     Dosage: UNK
  4. MEROPENEM. [Suspect]
     Active Substance: MEROPENEM
     Indication: BACTERIAL INFECTION
     Dosage: 500 MG, 2X/DAY
  5. ONDANSETRON [Concomitant]
     Active Substance: ONDANSETRON
     Dosage: UNK
  6. PANTOPRAZOLE [Concomitant]
     Active Substance: PANTOPRAZOLE
     Dosage: UNK
  7. AMLODIPINE [Concomitant]
     Active Substance: AMLODIPINE BESYLATE
     Dosage: UNK
  8. COLISTIN [Suspect]
     Active Substance: COLISTIN
     Indication: BACTERIAL INFECTION
     Dosage: 6 MILLION IU, UNK

REACTIONS (4)
  - Paraesthesia [Recovered/Resolved]
  - Neurotoxicity [Recovered/Resolved]
  - Pruritus generalised [Recovered/Resolved]
  - Muscular weakness [Recovered/Resolved]
